FAERS Safety Report 19666845 (Version 1)
Quarter: 2021Q3

REPORT INFORMATION
  Report Type: Spontaneous
  Country: US (occurrence: US)
  Receive Date: 20210806
  Receipt Date: 20210806
  Transmission Date: 20211014
  Serious: Yes (Hospitalization)
  Sender: FDA-Public Use
  Company Number: None

PATIENT
  Age: 57 Year
  Sex: Female

DRUGS (8)
  1. ARIPIRAZOLE [Concomitant]
     Active Substance: ARIPIPRAZOLE
  2. LEVOTHYROXIN [Concomitant]
     Active Substance: LEVOTHYROXINE
  3. ABILIFY [Concomitant]
     Active Substance: ARIPIPRAZOLE
  4. DULOXETINE. [Concomitant]
     Active Substance: DULOXETINE
  5. OCTREOTIDE ACETATE. [Suspect]
     Active Substance: OCTREOTIDE ACETATE
     Indication: DIARRHOEA
     Route: 058
     Dates: start: 20190524
  6. BUSPAR [Concomitant]
     Active Substance: BUSPIRONE HYDROCHLORIDE
  7. BUSPIRONE [Concomitant]
     Active Substance: BUSPIRONE HYDROCHLORIDE
  8. CYMBALTA [Concomitant]
     Active Substance: DULOXETINE HYDROCHLORIDE

REACTIONS (2)
  - Hospitalisation [None]
  - Therapy interrupted [None]

NARRATIVE: CASE EVENT DATE: 20210805
